FAERS Safety Report 15164904 (Version 12)
Quarter: 2018Q4

REPORT INFORMATION
  Report Type: Report from Study
  Country: US (occurrence: US)
  Receive Date: 20180719
  Receipt Date: 20181211
  Transmission Date: 20190204
  Serious: Yes (Hospitalization, Other)
  Sender: FDA-Public Use
  Company Number: US-GILEAD-2018-0345736

PATIENT
  Age: 29 Year
  Sex: Male

DRUGS (7)
  1. UPTRAVI [Suspect]
     Active Substance: SELEXIPAG
     Indication: PRODUCT USED FOR UNKNOWN INDICATION
     Dosage: UNK
     Route: 065
     Dates: end: 20180715
  2. TYVASO [Suspect]
     Active Substance: TREPROSTINIL
     Dosage: 6 BREATHS
     Route: 065
     Dates: start: 20181026
  3. AMBRISENTAN [Suspect]
     Active Substance: AMBRISENTAN
     Indication: PRODUCT USED FOR UNKNOWN INDICATION
     Dosage: 10 MG, QD
     Route: 065
     Dates: start: 20101115
  4. ADCIRCA [Concomitant]
     Active Substance: TADALAFIL
  5. TYVASO [Suspect]
     Active Substance: TREPROSTINIL
     Indication: PRODUCT USED FOR UNKNOWN INDICATION
     Dosage: 4 BREATHS
     Route: 065
  6. TYVASO [Suspect]
     Active Substance: TREPROSTINIL
     Dosage: 7 BREATHS
     Route: 065
  7. TADALAFIL. [Concomitant]
     Active Substance: TADALAFIL

REACTIONS (22)
  - Syncope [Unknown]
  - Pulmonary pain [Not Recovered/Not Resolved]
  - Condition aggravated [Unknown]
  - Diarrhoea [Not Recovered/Not Resolved]
  - Pneumonitis [Unknown]
  - Gait disturbance [Not Recovered/Not Resolved]
  - Seizure [Unknown]
  - Malaise [Recovering/Resolving]
  - Abdominal pain upper [Unknown]
  - Gastrooesophageal reflux disease [Unknown]
  - Dizziness [Recovering/Resolving]
  - Nausea [Not Recovered/Not Resolved]
  - Myocardial necrosis marker increased [Unknown]
  - Gallbladder disorder [Not Recovered/Not Resolved]
  - Inflammation [Not Recovered/Not Resolved]
  - Abdominal discomfort [Not Recovered/Not Resolved]
  - Dyspnoea [Not Recovered/Not Resolved]
  - Abdominal pain [Not Recovered/Not Resolved]
  - Oxygen saturation decreased [Unknown]
  - Long QT syndrome [Not Recovered/Not Resolved]
  - Epicondylitis [Not Recovered/Not Resolved]
  - Chest pain [Unknown]
